FAERS Safety Report 17510284 (Version 1)
Quarter: 2020Q1

REPORT INFORMATION
  Report Type: Spontaneous
  Country: US (occurrence: US)
  Receive Date: 20200306
  Receipt Date: 20200306
  Transmission Date: 20200409
  Serious: Yes (Other)
  Sender: FDA-Public Use
  Company Number: US-MYLANLABS-2020M1025182

PATIENT
  Age: 8 Decade
  Sex: Male

DRUGS (7)
  1. VENETOCLAX. [Suspect]
     Active Substance: VENETOCLAX
     Dosage: ON DAY 7 ONWARD OF A 4 WEEK CYCLE
     Route: 065
  2. VENETOCLAX. [Suspect]
     Active Substance: VENETOCLAX
     Indication: T-CELL PROLYMPHOCYTIC LEUKAEMIA
     Dosage: ON DAY 1 TO DAY 3 OF A 4 WEEK CYCLE
     Route: 065
  3. PENTOSTATIN. [Suspect]
     Active Substance: PENTOSTATIN
     Indication: T-CELL PROLYMPHOCYTIC LEUKAEMIA
     Dosage: 4 MILLIGRAM/SQ. METER, QW
     Route: 065
  4. VENETOCLAX. [Suspect]
     Active Substance: VENETOCLAX
     Dosage: ON DAY 4 TO DAY 6 OF A 4 WEEK CYCLE
     Route: 065
  5. ALEMTUZUMAB [Suspect]
     Active Substance: ALEMTUZUMAB
     Dosage: THREE TIMES A WEEK (SALVAGE TREATMENT)
     Route: 042
  6. CLADRIBINE. [Concomitant]
     Active Substance: CLADRIBINE
     Indication: T-CELL PROLYMPHOCYTIC LEUKAEMIA
     Dosage: SALVAGE TREATMENT; FOR 5 DAYS
     Route: 042
  7. ALEMTUZUMAB [Suspect]
     Active Substance: ALEMTUZUMAB
     Indication: T-CELL PROLYMPHOCYTIC LEUKAEMIA
     Dosage: UNSPECIFIED STARTING DOSE
     Route: 042
     Dates: start: 201711

REACTIONS (6)
  - Nephritis [Unknown]
  - Human polyomavirus infection [Recovered/Resolved]
  - Neutropenia [Unknown]
  - Adenovirus infection [Recovered/Resolved]
  - Bone marrow failure [Unknown]
  - Cytopenia [Unknown]
